FAERS Safety Report 10225114 (Version 2)
Quarter: 2014Q2

REPORT INFORMATION
  Report Type: Report from Study
  Country: DE (occurrence: DE)
  Receive Date: 20140609
  Receipt Date: 20140609
  Transmission Date: 20141212
  Serious: Yes (Hospitalization, Other)
  Sender: FDA-Public Use
  Company Number: DE-009507513-1108USA00934

PATIENT
  Age: 60 Year
  Sex: Male
  Weight: 85 kg

DRUGS (9)
  1. SIMVASTATIN [Suspect]
     Indication: ACUTE CORONARY SYNDROME
     Dosage: 40 MG, QD
     Route: 048
     Dates: start: 20100209
  2. HYDROCHLOROTHIAZIDE [Concomitant]
     Dosage: TOTAL DAILY DOSE 12.5 MG
     Route: 048
     Dates: start: 20110107
  3. LAMOTRIGINE [Concomitant]
     Dosage: TOTAL DAILY DOSE: 100 MG
     Route: 048
     Dates: start: 20101010
  4. LAMOTRIGINE [Concomitant]
     Dosage: TOTAL DAILY DOSE:150 MG
     Route: 048
     Dates: start: 20110608
  5. ASPIRIN [Concomitant]
     Dosage: TOTAL DAILY DOSE:100 MG
     Route: 048
     Dates: start: 20100205
  6. RAMIPRIL [Concomitant]
     Dosage: TOTAL DAILY DOSE:10 MG
     Route: 048
     Dates: start: 20100205
  7. PENTAERYTHRITOL TETRANITRATE [Concomitant]
     Dosage: TOTAL DAILY DOSE:160 MG
     Route: 048
     Dates: start: 20110111
  8. METOPROLOL [Concomitant]
     Dosage: TOTAL DAILY DOSE:50 MG
     Route: 048
     Dates: start: 20110113
  9. PANTOPRAZOLE [Concomitant]
     Dosage: TOTAL DAILY DOSE:80 MG
     Route: 048
     Dates: start: 20110111

REACTIONS (3)
  - Hepatic cyst [Not Recovered/Not Resolved]
  - Pancreatitis acute [Recovered/Resolved]
  - Cholelithiasis [Recovered/Resolved]
